FAERS Safety Report 8765595 (Version 1)
Quarter: 2012Q4

REPORT INFORMATION
  Report Type: 
  Country: US (occurrence: US)
  Receive Date: 20120831
  Receipt Date: 20120831
  Transmission Date: 20130627
  Serious: Yes (Other)
  Sender: FDA-Public Use
  Company Number: US-BAYER-2012-089899

PATIENT
  Age: 22 Year
  Sex: Male
  Weight: 84 kg

DRUGS (4)
  1. ASP SEVERE SINUS CONGESTION ALLERGY + COUGH LG [Suspect]
     Dosage: 2 LIQUID GELS ONCE DAILY
     Route: 048
     Dates: start: 20120827
  2. PAXIL [Concomitant]
  3. DECONGESTANT [Concomitant]
  4. IBUPROFEN [Concomitant]

REACTIONS (4)
  - Hyperhidrosis [Recovering/Resolving]
  - Dizziness [Recovering/Resolving]
  - Confusional state [Recovering/Resolving]
  - Palpitations [Recovering/Resolving]
